FAERS Safety Report 8854109 (Version 1)
Quarter: 2012Q4

REPORT INFORMATION
  Report Type: Spontaneous
  Country: US (occurrence: None)
  Receive Date: 20121018
  Receipt Date: 20121018
  Transmission Date: 20130627
  Serious: Yes (Hospitalization)
  Sender: FDA-Public Use
  Company Number: TPA2012A07760

PATIENT
  Age: 74 Year
  Sex: Female

DRUGS (1)
  1. EDARBYCLOR [Suspect]
     Dosage: 1 IN 1 D, Per oral
     Route: 048
     Dates: start: 2012, end: 2012

REACTIONS (1)
  - Blood sodium decreased [None]
